FAERS Safety Report 20168900 (Version 4)
Quarter: 2022Q1

REPORT INFORMATION
  Report Type: Report from Study
  Country: US (occurrence: US)
  Receive Date: 20211210
  Receipt Date: 20220206
  Transmission Date: 20220424
  Serious: Yes (Death)
  Sender: FDA-Public Use
  Company Number: US-ABBVIE-21K-163-4193430-00

PATIENT
  Age: 73 Year
  Sex: Female
  Weight: 77.180 kg

DRUGS (15)
  1. RINVOQ [Suspect]
     Active Substance: UPADACITINIB
     Indication: Rheumatoid arthritis
     Route: 048
     Dates: start: 2020, end: 20211124
  2. RINVOQ [Suspect]
     Active Substance: UPADACITINIB
     Route: 048
  3. ELIQUIS [Concomitant]
     Active Substance: APIXABAN
     Indication: Anticoagulant therapy
  4. REQUIP [Concomitant]
     Active Substance: ROPINIROLE HYDROCHLORIDE
     Indication: Swelling
  5. PLAVIX [Concomitant]
     Active Substance: CLOPIDOGREL BISULFATE
     Indication: Anticoagulant therapy
  6. NAMENDA [Concomitant]
     Active Substance: MEMANTINE HYDROCHLORIDE
     Indication: Dementia
  7. CELEXA [Concomitant]
     Active Substance: CITALOPRAM HYDROBROMIDE
     Indication: Depression
  8. BACLOFEN [Concomitant]
     Active Substance: BACLOFEN
     Indication: Muscle spasms
  9. SINGULAIR [Concomitant]
     Active Substance: MONTELUKAST SODIUM
     Indication: Hypersensitivity
  10. PROTONIX [Concomitant]
     Active Substance: PANTOPRAZOLE SODIUM
     Indication: Dyspepsia
  11. NEURONTIN [Concomitant]
     Active Substance: GABAPENTIN
     Indication: Neuropathy peripheral
  12. MEDROL [Concomitant]
     Active Substance: METHYLPREDNISOLONE
     Indication: Rheumatoid arthritis
  13. DILTIAZEM [Concomitant]
     Active Substance: DILTIAZEM
     Indication: Hypertension
  14. MODERNA COVID-19 VACCINE [Concomitant]
     Active Substance: ELASOMERAN
     Indication: COVID-19 immunisation
     Dosage: MODERNA
     Route: 030
     Dates: start: 202104, end: 202104
  15. MODERNA COVID-19 VACCINE [Concomitant]
     Active Substance: ELASOMERAN
     Dosage: MODERNA
     Route: 030
     Dates: start: 202105, end: 202105

REACTIONS (7)
  - Cerebrovascular accident [Fatal]
  - Dysphagia [Not Recovered/Not Resolved]
  - Pain in extremity [Not Recovered/Not Resolved]
  - Skin warm [Not Recovered/Not Resolved]
  - Monoplegia [Not Recovered/Not Resolved]
  - Limb injury [Recovered/Resolved]
  - Product use issue [Unknown]

NARRATIVE: CASE EVENT DATE: 20210901
